FAERS Safety Report 13623005 (Version 2)
Quarter: 2017Q2

REPORT INFORMATION
  Report Type: Spontaneous
  Country: ES (occurrence: ES)
  Receive Date: 20170607
  Receipt Date: 20170623
  Transmission Date: 20170830
  Serious: Yes (Other)
  Sender: FDA-Public Use
  Company Number: ES-SUN PHARMACEUTICAL INDUSTRIES LTD-2017RR-142206

PATIENT

DRUGS (2)
  1. ATOSIBAN NORMOSAN [Suspect]
     Active Substance: ATOSIBAN
     Indication: PREMATURE LABOUR
     Dosage: DESMOPRESSIN-CONTAMINATED ATOSIBAN
     Route: 064
  2. DESMOPRESSIN [Suspect]
     Active Substance: DESMOPRESSIN
     Indication: PRODUCT USED FOR UNKNOWN INDICATION
     Dosage: DESMOPRESSIN-CONTAMINATED ATOSIBAN
     Route: 064

REACTIONS (3)
  - Foetal exposure during pregnancy [Unknown]
  - Maternal drugs affecting foetus [None]
  - Premature baby [Unknown]
